FAERS Safety Report 9165426 (Version 2)
Quarter: 2013Q2

REPORT INFORMATION
  Report Type: Spontaneous
  Country: ES (occurrence: None)
  Receive Date: 20130301
  Receipt Date: 20130401
  Transmission Date: 20140414
  Serious: Yes (Life-Threatening, Hospitalization)
  Sender: FDA-Public Use
  Company Number: IND1-ES-2013-0016

PATIENT
  Age: 64 Year
  Sex: Male

DRUGS (3)
  1. INACID [Suspect]
     Indication: ANKYLOSING SPONDYLITIS
     Dates: end: 20130202
  2. ANTINHYPERTENSIVE TREATMENT (NOS) (ANTIHYPERTENSIVES) (UNKNOWN) [Concomitant]
  3. HYPOLIPEMIANT TREATMENT (NOS) (SERUM LIPID REDUCING AENTS) (UNKNOWN) [Concomitant]

REACTIONS (13)
  - Dysphagia [None]
  - Swelling face [None]
  - Hyponatraemia [None]
  - Hypothyroidism [None]
  - Respiratory tract infection [None]
  - Aspiration bronchial [None]
  - Bronchospasm [None]
  - Tracheal haemorrhage [None]
  - Granuloma [None]
  - Pneumonia [None]
  - Local swelling [None]
  - Constipation [None]
  - Thrombocytopenia [None]
